FAERS Safety Report 16662617 (Version 1)
Quarter: 2019Q3

REPORT INFORMATION
  Report Type: Report from Study
  Country: US (occurrence: US)
  Receive Date: 20190802
  Receipt Date: 20190802
  Transmission Date: 20191004
  Serious: No
  Sender: FDA-Public Use
  Company Number: US-EXELIXIS-CABO-18017877

PATIENT
  Age: 64 Year
  Sex: Male

DRUGS (9)
  1. KIONEX [Concomitant]
     Active Substance: SODIUM POLYSTYRENE SULFONATE
     Dosage: UNK
  2. ONDANSETRON [Concomitant]
     Active Substance: ONDANSETRON
     Dosage: UNK
  3. PREDNISONE. [Concomitant]
     Active Substance: PREDNISONE
     Dosage: UNK
  4. CABOMETYX [Suspect]
     Active Substance: CABOZANTINIB S-MALATE
     Indication: RENAL CELL CARCINOMA
     Dosage: 60 MG, QD
     Route: 048
     Dates: start: 20181017
  5. FERROUS SULFATE. [Concomitant]
     Active Substance: FERROUS SULFATE
     Dosage: UNK
  6. LOSARTAN POTASSIUM. [Concomitant]
     Active Substance: LOSARTAN POTASSIUM
     Dosage: UNK
  7. LISINOPRIL. [Concomitant]
     Active Substance: LISINOPRIL
     Dosage: UNK
  8. RAYALDEE [Concomitant]
     Active Substance: CALCIFEDIOL
     Dosage: UNK
  9. SPS [Concomitant]
     Active Substance: SODIUM POLYSTYRENE SULFONATE
     Dosage: UNK

REACTIONS (1)
  - Dyspepsia [Recovered/Resolved]

NARRATIVE: CASE EVENT DATE: 201812
